FAERS Safety Report 5203698-3 (Version None)
Quarter: 2007Q1

REPORT INFORMATION
  Report Type: 
  Country: None (occurrence: None)
  Receive Date: 20070105
  Receipt Date: 20070105
  Transmission Date: 20070707
  Serious: Yes (Other)
  Sender: FDA-Public Use
  Company Number: None

PATIENT
  Age: 64 Year
  Sex: Female
  Weight: 68.0396 kg

DRUGS (12)
  1. METFORMIN   500MG [Suspect]
     Indication: DIABETES MELLITUS NON-INSULIN-DEPENDENT
     Dosage: 1 TABLET TWICE DAILY
     Dates: start: 20061201, end: 20061210
  2. GLIPIZIDE [Concomitant]
  3. FEXOFENADINE [Concomitant]
  4. KLOR-CON [Concomitant]
  5. THEOPHYLLINE-SR [Concomitant]
  6. AVANDIA [Concomitant]
  7. LISINOPRIL [Concomitant]
  8. FLUOXETINE [Concomitant]
  9. FUROSEMIDE [Concomitant]
  10. ATENOLOL [Concomitant]
  11. AZMACORT [Concomitant]
  12. ALBUTEROL [Concomitant]

REACTIONS (2)
  - BLOOD GLUCOSE INCREASED [None]
  - PHARMACEUTICAL PRODUCT COMPLAINT [None]
